FAERS Safety Report 8482758-8 (Version None)
Quarter: 2012Q3

REPORT INFORMATION
  Report Type: 
  Country: None (occurrence: None)
  Receive Date: 20120702
  Receipt Date: 20120622
  Transmission Date: 20120928
  Serious: Yes (Hospitalization)
  Sender: FDA-Public Use
  Company Number: US-JNJFOC-20120102529

PATIENT
  Sex: Female
  Weight: 11.7 kg

DRUGS (1)
  1. CHILDREN'S MOTRIN [Suspect]
     Indication: PRODUCT USED FOR UNKNOWN INDICATION
     Route: 065
     Dates: start: 20100501, end: 20110501

REACTIONS (2)
  - STEVENS-JOHNSON SYNDROME [None]
  - PRODUCT QUALITY ISSUE [None]
